FAERS Safety Report 19127495 (Version 1)
Quarter: 2021Q2

REPORT INFORMATION
  Report Type: Spontaneous
  Country: US (occurrence: US)
  Receive Date: 20210413
  Receipt Date: 20210413
  Transmission Date: 20210717
  Serious: No
  Sender: FDA-Public Use
  Company Number: US-ALLERGAN-2014338US

PATIENT
  Sex: Female

DRUGS (1)
  1. LATISSE [Suspect]
     Active Substance: BIMATOPROST
     Indication: GROWTH OF EYELASHES
     Dosage: 1 APPLICATION PER UPPER EYELID AT NIGHT BEFORE BEDTIME
     Route: 061
     Dates: start: 20200330, end: 20200331

REACTIONS (3)
  - Eyelid rash [Recovered/Resolved]
  - Erythema of eyelid [Recovered/Resolved]
  - Therapy cessation [Unknown]

NARRATIVE: CASE EVENT DATE: 20200331
